FAERS Safety Report 5258254-8 (Version None)
Quarter: 2007Q1

REPORT INFORMATION
  Report Type: 
  Country: None (occurrence: None)
  Receive Date: 20070302
  Receipt Date: 20070221
  Transmission Date: 20070707
  Serious: Yes (Other)
  Sender: FDA-Public Use
  Company Number: THYM-11325

PATIENT
  Age: 42 Year
  Sex: Male
  Weight: 84 kg

DRUGS (5)
  1. THYMOGLOBULIN [Suspect]
     Indication: RENAL TRANSPLANT
     Dosage: 125 MG QD IV
     Route: 042
     Dates: start: 20070209, end: 20070209
  2. THYMOGLOBULIN [Suspect]
     Indication: RENAL TRANSPLANT
     Dosage: 125 MG QD IV
     Route: 042
     Dates: start: 20070214, end: 20070214
  3. CELLCEPT [Concomitant]
  4. METHYLPREDNISONE [Concomitant]
  5. NYSTATIN [Concomitant]

REACTIONS (2)
  - CHILLS [None]
  - SERUM SICKNESS [None]
